FAERS Safety Report 18545066 (Version 2)
Quarter: 2021Q1

REPORT INFORMATION
  Report Type: Report from Study
  Country: CA (occurrence: CA)
  Receive Date: 20201125
  Receipt Date: 20210122
  Transmission Date: 20210419
  Serious: Yes (Hospitalization, Other)
  Sender: FDA-Public Use
  Company Number: CA-TAKEDA-2020TUS051884

PATIENT
  Age: 88 Year
  Sex: Female

DRUGS (14)
  1. CALCIUM [Concomitant]
     Active Substance: CALCIUM
     Dosage: UNK
  2. GAMMAGARD LIQUID [Suspect]
     Active Substance: HUMAN IMMUNOGLOBULIN G
     Indication: SECONDARY IMMUNODEFICIENCY
     Dosage: 6 GRAM, 1/WEEK
     Route: 058
     Dates: start: 20191108
  3. FOLATE [Concomitant]
     Active Substance: FOLATE SODIUM
     Dosage: UNK
  4. RABEPRAZOLE [Concomitant]
     Active Substance: RABEPRAZOLE
     Dosage: UNK
  5. PREDNISONE. [Concomitant]
     Active Substance: PREDNISONE
     Dosage: 12.5MILLIGRAM/7.5MILLIGRAM, EVERY OTHER DAY
  6. RISEDRONATE [Concomitant]
     Active Substance: RISEDRONATE SODIUM
     Dosage: UNK
  7. VITAMIN D [COLECALCIFEROL] [Concomitant]
     Active Substance: CHOLECALCIFEROL
     Dosage: UNK
  8. DAPSONE. [Concomitant]
     Active Substance: DAPSONE
     Dosage: UNK
  9. VALACICLOVIR [Concomitant]
     Active Substance: VALACYCLOVIR HYDROCHLORIDE
     Dosage: UNK
  10. VENETOCLAX. [Concomitant]
     Active Substance: VENETOCLAX
     Dosage: UNK
  11. IBRUTINIB [Concomitant]
     Active Substance: IBRUTINIB
     Dosage: UNK
  12. MONOCOR [Concomitant]
     Active Substance: BISOPROLOL FUMARATE
     Dosage: 25 MILLIGRAM, 1 TO 4 TAB QD
  13. SYNTHROID [Concomitant]
     Active Substance: LEVOTHYROXINE SODIUM
     Dosage: UNK
     Dates: start: 202008
  14. LIPITOR [Concomitant]
     Active Substance: ATORVASTATIN CALCIUM
     Dosage: 10 MILLIGRAM, Q1HR

REACTIONS (7)
  - Fall [Unknown]
  - Immunoglobulins decreased [Unknown]
  - Incorrect dose administered [Unknown]
  - Memory impairment [Unknown]
  - Hip arthroplasty [Unknown]
  - Blood pressure decreased [Unknown]
  - Myocardial infarction [Unknown]

NARRATIVE: CASE EVENT DATE: 20201007
